FAERS Safety Report 4442351-0 (Version None)
Quarter: 2004Q3

REPORT INFORMATION
  Report Type: 
  Country: None (occurrence: None)
  Receive Date: 20040903
  Receipt Date: 20040521
  Transmission Date: 20050211
  Serious: Yes (Other)
  Sender: FDA-Public Use
  Company Number: 2004UW09054

PATIENT
  Age: 74 Year
  Sex: Female
  Weight: 55.7924 kg

DRUGS (4)
  1. CRESTOR [Suspect]
     Indication: BLOOD CHOLESTEROL INCREASED
     Dosage: 10 MG QD PO
     Route: 048
     Dates: start: 20040401, end: 20040520
  2. ZOLOFT [Concomitant]
  3. TENORMIN [Concomitant]
  4. ATACAND [Concomitant]

REACTIONS (1)
  - ALOPECIA [None]
